FAERS Safety Report 5487702-3 (Version None)
Quarter: 2007Q4

REPORT INFORMATION
  Report Type: 
  Country: None (occurrence: None)
  Receive Date: 20071017
  Receipt Date: 20071009
  Transmission Date: 20080405
  Serious: Yes (Other)
  Sender: FDA-Public Use
  Company Number: PHBS2007BR16889

PATIENT
  Age: 74 Year
  Sex: Female
  Weight: 68 kg

DRUGS (3)
  1. DIOVAN [Suspect]
     Indication: HYPERTENSION
     Dosage: 160 MG/DAY
     Route: 048
     Dates: start: 20070601
  2. PURAN T4 [Concomitant]
     Indication: THYROID DISORDER
     Dosage: 100 MG, QD
     Route: 048
  3. CLORANA [Concomitant]
     Indication: DIURETIC THERAPY
     Dosage: 25 MG, QD
     Route: 048

REACTIONS (8)
  - BURNING SENSATION MUCOSAL [None]
  - DIZZINESS [None]
  - DYSGEUSIA [None]
  - FALL [None]
  - FEELING ABNORMAL [None]
  - GINGIVAL SWELLING [None]
  - MALAISE [None]
  - SWOLLEN TONGUE [None]
